FAERS Safety Report 5083319-3 (Version None)
Quarter: 2006Q3

REPORT INFORMATION
  Report Type: 
  Country: None (occurrence: None)
  Receive Date: 20060818
  Receipt Date: 20060418
  Transmission Date: 20061208
  Serious: Yes (Hospitalization)
  Sender: FDA-Public Use
  Company Number: FRWYE506403AUG06

PATIENT
  Age: 71 Year
  Sex: Male

DRUGS (6)
  1. ENBREL [Suspect]
     Indication: PSORIATIC ARTHROPATHY
     Dosage: UNKNOWN
     Route: 058
  2. COVERSYL [Concomitant]
  3. LASILIX [Concomitant]
  4. DILTIAZEM HYDROCHLORIDE [Concomitant]
  5. ADANCOR [Concomitant]
  6. PRAVASTATIN [Concomitant]

REACTIONS (2)
  - PENIS CARCINOMA [None]
  - SCROTAL CANCER [None]
